FAERS Safety Report 4728824-1 (Version None)
Quarter: 2005Q3

REPORT INFORMATION
  Report Type: 
  Country: None (occurrence: None)
  Receive Date: 20050729
  Receipt Date: 20050704
  Transmission Date: 20060218
  Serious: Yes (Other)
  Sender: FDA-Public Use
  Company Number: BE-ROCHE-409467

PATIENT
  Age: 64 Year
  Sex: Male
  Weight: 79.5 kg

DRUGS (7)
  1. DACLIZUMAB [Suspect]
     Route: 042
     Dates: start: 20050602, end: 20050602
  2. DACLIZUMAB [Suspect]
     Route: 042
     Dates: start: 20050616, end: 20050616
  3. MYCOPHENOLATE MOFETIL [Suspect]
     Route: 065
     Dates: start: 20050603
  4. SIROLIMUS [Suspect]
     Route: 048
     Dates: start: 20050602
  5. ZANTAC [Suspect]
     Indication: DRUG USE FOR UNKNOWN INDICATION
     Route: 065
     Dates: start: 20050603, end: 20050613
  6. PLENDIL [Concomitant]
     Dates: start: 20050603
  7. DELTACORTRIL [Concomitant]
     Dates: start: 20050604

REACTIONS (1)
  - HEPATIC ENZYME ABNORMAL [None]
